FAERS Safety Report 14893628 (Version 1)
Quarter: 2018Q2

REPORT INFORMATION
  Report Type: Spontaneous
  Country: PE (occurrence: PE)
  Receive Date: 20180514
  Receipt Date: 20180514
  Transmission Date: 20180711
  Serious: Yes (Death, Other)
  Sender: FDA-Public Use
  Company Number: PE-009507513-1805PER002240

PATIENT
  Age: 25 Year

DRUGS (1)
  1. BRIDION [Suspect]
     Active Substance: SUGAMMADEX
     Indication: MUSCLE RELAXANT THERAPY
     Dosage: STRENGTH:100 MG/ML, UNK
     Dates: start: 2018, end: 2018

REACTIONS (4)
  - Shock [Unknown]
  - Blood pressure decreased [Not Recovered/Not Resolved]
  - Death [Fatal]
  - Device effect incomplete [Recovered/Resolved]

NARRATIVE: CASE EVENT DATE: 2018
